FAERS Safety Report 9292538 (Version 3)
Quarter: 2013Q2

REPORT INFORMATION
  Report Type: Spontaneous
  Country: TR (occurrence: TR)
  Receive Date: 20130516
  Receipt Date: 20130603
  Transmission Date: 20140414
  Serious: Yes (Other)
  Sender: FDA-Public Use
  Company Number: TR-ASTELLAS-2013EU004272

PATIENT
  Age: 14 Year
  Sex: Female

DRUGS (1)
  1. PROGRAF [Suspect]
     Dosage: UNK
     Route: 065

REACTIONS (5)
  - Hypomagnesaemia [Unknown]
  - Hypocalcaemia [Unknown]
  - Dyspepsia [Unknown]
  - Gastritis atrophic [Unknown]
  - Calcinosis [Unknown]
